FAERS Safety Report 8297751-8 (Version None)
Quarter: 2012Q2

REPORT INFORMATION
  Report Type: 
  Country: None (occurrence: None)
  Receive Date: 20120419
  Receipt Date: 20120410
  Transmission Date: 20120825
  Serious: Yes (Other)
  Sender: FDA-Public Use
  Company Number: NZ-B.I. PHARMACEUTICALS,INC./RIDGEFIELD-2012-EU-02058GD

PATIENT
  Age: 89 Year
  Sex: Female
  Weight: 55.8 kg

DRUGS (4)
  1. SOTALOL HCL [Concomitant]
  2. DABIGATRAN [Suspect]
     Indication: ATRIAL FIBRILLATION
     Dosage: 220 MG
  3. SIMVASTATIN [Concomitant]
  4. CHOLECALCIFEROL [Concomitant]

REACTIONS (2)
  - LETHARGY [None]
  - ARTHRALGIA [None]
